FAERS Safety Report 23554990 (Version 3)
Quarter: 2024Q2

REPORT INFORMATION
  Report Type: Spontaneous
  Country: CA (occurrence: CA)
  Receive Date: 20240222
  Receipt Date: 20240404
  Transmission Date: 20240715
  Serious: Yes (Other)
  Sender: FDA-Public Use
  Company Number: CA-PFIZER INC-202400047140

PATIENT
  Age: 55 Year
  Sex: Male

DRUGS (2)
  1. RUXIENCE [Suspect]
     Active Substance: RITUXIMAB-PVVR
     Dosage: ALMOST 50 ML (200 MG) WRONG DRUG ADMINISTERED
     Route: 042
     Dates: start: 20240216, end: 20240216
  2. ENTYVIO [Concomitant]
     Active Substance: VEDOLIZUMAB
     Dosage: UNK

REACTIONS (3)
  - Wrong patient received product [Unknown]
  - Sneezing [Recovered/Resolved]
  - Cough [Recovered/Resolved]

NARRATIVE: CASE EVENT DATE: 20240216
